FAERS Safety Report 9882224 (Version 2)
Quarter: 2014Q1

REPORT INFORMATION
  Report Type: Spontaneous
  Country: US (occurrence: US)
  Receive Date: 20140207
  Receipt Date: 20140218
  Transmission Date: 20141002
  Serious: Yes (Other)
  Sender: FDA-Public Use
  Company Number: US-AMGEN-USASP2014007367

PATIENT
  Age: 92 Year
  Sex: Male

DRUGS (4)
  1. ARANESP [Suspect]
     Indication: PRODUCT USED FOR UNKNOWN INDICATION
     Dosage: 300 MUG, EVERY 3 TO 4 WEEKS
     Route: 065
  2. PROCRIT [Suspect]
     Indication: PRODUCT USED FOR UNKNOWN INDICATION
     Dosage: UNK
     Route: 065
     Dates: end: 201310
  3. IRON [Concomitant]
  4. PREDNISONE [Concomitant]
     Dosage: UNK
     Dates: start: 20130118

REACTIONS (2)
  - Therapeutic response decreased [Unknown]
  - Myelodysplastic syndrome [Unknown]
